FAERS Safety Report 16598508 (Version 1)
Quarter: 2019Q3

REPORT INFORMATION
  Report Type: Spontaneous
  Country: US (occurrence: US)
  Receive Date: 20190719
  Receipt Date: 20190719
  Transmission Date: 20191004
  Serious: Yes (Hospitalization)
  Sender: FDA-Public Use
  Company Number: US-ASTRAZENECA-2019SF00939

PATIENT
  Age: 31957 Day
  Sex: Male

DRUGS (4)
  1. SINEMET [Concomitant]
     Active Substance: CARBIDOPA\LEVODOPA
     Dates: end: 20190430
  2. SEROQUEL [Suspect]
     Active Substance: QUETIAPINE FUMARATE
     Dosage: 0.5DF UNKNOWN
     Route: 048
     Dates: start: 2019
  3. SEROQUEL [Suspect]
     Active Substance: QUETIAPINE FUMARATE
     Dosage: 1.0DF UNKNOWN
     Route: 048
     Dates: start: 20190628, end: 201906
  4. SINEMET [Concomitant]
     Active Substance: CARBIDOPA\LEVODOPA
     Dates: start: 20190523

REACTIONS (4)
  - Sedation [Not Recovered/Not Resolved]
  - Confusional state [Not Recovered/Not Resolved]
  - Asthenia [Not Recovered/Not Resolved]
  - Sleep disorder [Not Recovered/Not Resolved]

NARRATIVE: CASE EVENT DATE: 20190628
